FAERS Safety Report 6630880-0 (Version None)
Quarter: 2010Q1

REPORT INFORMATION
  Report Type: 
  Country: None (occurrence: None)
  Receive Date: 20100311
  Receipt Date: 20100224
  Transmission Date: 20100710
  Serious: Yes (Hospitalization, Other)
  Sender: FDA-Public Use
  Company Number: US-ROCHE-666121

PATIENT
  Sex: Male
  Weight: 73.3 kg

DRUGS (12)
  1. BEVACIZUMAB [Suspect]
     Indication: NON-SMALL CELL LUNG CANCER
     Dosage: 15 MG/KG, UNK,  TTD: 1000 MG. LAST DOSE PRIOR TO SAE: 13 OCTOBER 2009. DRUG PERMANENTLY STOPPED.
     Route: 042
     Dates: start: 20090901, end: 20091028
  2. CARBOPLATIN [Suspect]
     Indication: NON-SMALL CELL LUNG CANCER
     Dosage: 5 AUC IV OVER 30-60 MIN, TDD: 446 MG.
     Route: 042
     Dates: start: 20090901, end: 20091013
  3. IXABEPILONE [Suspect]
     Indication: NON-SMALL CELL LUNG CANCER
     Dosage: 25 MG/M2, UNK, TDD: 45 MG.
     Route: 042
     Dates: start: 20090901, end: 20091013
  4. FLORINEF [Concomitant]
     Dosage: 0.1 MG, QD
     Dates: start: 20090908, end: 20091030
  5. ATIVAN [Concomitant]
     Dosage: 1 MG, PRN
     Dates: start: 20090901, end: 20091030
  6. PRAVASTATIN [Concomitant]
     Dosage: 20 MG, QD
     Dates: start: 20030101
  7. PROTONIX [Concomitant]
     Dosage: 40 MG, QD
     Dates: start: 20030101
  8. ASPIRIN [Concomitant]
     Dosage: 81 MG, QD
     Dates: start: 20030101
  9. METOPROLOL [Concomitant]
     Dosage: ON HOLD
     Dates: start: 20030101
  10. LISINOPRIL [Concomitant]
     Dosage: 120 MG, QHS.  ON HOLD.
     Dates: start: 20030101
  11. PHENERGAN HCL [Concomitant]
     Dosage: 25 MG Q 6-8 HOURLY PRN.
     Dates: start: 20090901
  12. ZOFRAN [Concomitant]
     Dosage: PRN
     Dates: start: 20090901

REACTIONS (9)
  - ASTHENIA [None]
  - DEHYDRATION [None]
  - FATIGUE [None]
  - HAEMOGLOBIN DECREASED [None]
  - HYPOTENSION [None]
  - HYPOVOLAEMIA [None]
  - NEUTROPHIL COUNT DECREASED [None]
  - PLATELET COUNT DECREASED [None]
  - WHITE BLOOD CELL COUNT DECREASED [None]
